FAERS Safety Report 5715668-7 (Version None)
Quarter: 2008Q2

REPORT INFORMATION
  Report Type: 
  Country: None (occurrence: None)
  Receive Date: 20080424
  Receipt Date: 20080416
  Transmission Date: 20081010
  Serious: Yes (Hospitalization)
  Sender: FDA-Public Use
  Company Number: AU-JNJFOC-20080404483

PATIENT
  Age: 47 Year
  Sex: Female
  Weight: 69 kg

DRUGS (6)
  1. RISPERIDONE [Suspect]
     Indication: DRUG USE FOR UNKNOWN INDICATION
     Route: 048
  2. ZELDOX [Suspect]
     Indication: DRUG USE FOR UNKNOWN INDICATION
     Route: 048
  3. EFFEXOR [Concomitant]
  4. METFORMIN HCL [Concomitant]
  5. SERTRALINE HYDROCHLORIDE [Concomitant]
  6. SIMVASTATIN [Concomitant]

REACTIONS (21)
  - AGITATION [None]
  - ANXIETY [None]
  - ATRIAL FIBRILLATION [None]
  - BACK PAIN [None]
  - BRADYCARDIA [None]
  - COGWHEEL RIGIDITY [None]
  - DIZZINESS [None]
  - DYSKINESIA [None]
  - ELECTROCARDIOGRAM ABNORMAL [None]
  - ELECTROCARDIOGRAM QT PROLONGED [None]
  - FATIGUE [None]
  - FLANK PAIN [None]
  - INSOMNIA [None]
  - MUSCLE SPASMS [None]
  - NIGHTMARE [None]
  - SUICIDAL IDEATION [None]
  - SYNCOPE [None]
  - TARDIVE DYSKINESIA [None]
  - TREMOR [None]
  - VOMITING [None]
  - WEIGHT INCREASED [None]
